FAERS Safety Report 5260964-3 (Version None)
Quarter: 2007Q1

REPORT INFORMATION
  Report Type: 
  Country: None (occurrence: None)
  Receive Date: 20070309
  Receipt Date: 20070226
  Transmission Date: 20070707
  Serious: Yes (Other)
  Sender: FDA-Public Use
  Company Number: US-NOVOPROD-261130

PATIENT
  Age: 57 Year
  Sex: Male

DRUGS (1)
  1. NOVOLIN N [Suspect]
     Indication: INSULIN-REQUIRING TYPE II DIABETES MELLITUS
     Dosage: 12 IU, QD
     Route: 058
     Dates: start: 20070108

REACTIONS (1)
  - LOCALISED INFECTION [None]
